FAERS Safety Report 14482541 (Version 8)
Quarter: 2019Q4

REPORT INFORMATION
  Report Type: Report from Study
  Country: FR (occurrence: FR)
  Receive Date: 20180202
  Receipt Date: 20191023
  Transmission Date: 20200122
  Serious: Yes (Hospitalization)
  Sender: FDA-Public Use
  Company Number: PHHY2017FR179703

PATIENT
  Age: 48 Year
  Sex: Male

DRUGS (16)
  1. PROGRAF [Concomitant]
     Active Substance: TACROLIMUS
     Dosage: 1.5 MG, QD
     Route: 065
     Dates: start: 20150604, end: 20150715
  2. CERTICAN [Suspect]
     Active Substance: EVEROLIMUS
     Dosage: 3.5 MG, QD
     Route: 048
     Dates: start: 20180705
  3. CERTICAN [Suspect]
     Active Substance: EVEROLIMUS
     Indication: IMMUNOSUPPRESSANT DRUG THERAPY
     Dosage: 3 MG, QD
     Route: 048
     Dates: start: 20150604, end: 20150715
  4. CELLCEPT [Suspect]
     Active Substance: MYCOPHENOLATE MOFETIL\MYCOPHENOLATE MOFETIL HYDROCHLORIDE
     Indication: IMMUNOSUPPRESSANT DRUG THERAPY
     Dosage: 1000 MG, QD
     Route: 065
     Dates: start: 20150507, end: 20171128
  5. PROGRAF [Concomitant]
     Active Substance: TACROLIMUS
     Dosage: 4.5 MG, QD
     Route: 065
     Dates: start: 20140919, end: 20141012
  6. PROGRAF [Concomitant]
     Active Substance: TACROLIMUS
     Indication: IMMUNOSUPPRESSANT DRUG THERAPY
     Dosage: 7 MG, QD
     Route: 065
     Dates: start: 20140327, end: 20140423
  7. PROGRAF [Concomitant]
     Active Substance: TACROLIMUS
     Dosage: 5.5 MG, QD
     Route: 065
     Dates: start: 20140424, end: 20140826
  8. PROGRAF [Concomitant]
     Active Substance: TACROLIMUS
     Dosage: 4 MG, QD
     Route: 065
     Dates: start: 20141013, end: 20141127
  9. PROGRAF [Concomitant]
     Active Substance: TACROLIMUS
     Dosage: 5 MG, QD
     Route: 065
     Dates: start: 20140827, end: 20140918
  10. CERTICAN [Suspect]
     Active Substance: EVEROLIMUS
     Indication: LIVER TRANSPLANT
     Dosage: 2 MG, QD
     Route: 048
     Dates: start: 20150507, end: 20150603
  11. CERTICAN [Suspect]
     Active Substance: EVEROLIMUS
     Dosage: 2.5 MG, QD
     Route: 048
     Dates: start: 20150716, end: 20150810
  12. CERTICAN [Suspect]
     Active Substance: EVEROLIMUS
     Dosage: 3 MG, QD
     Route: 048
     Dates: start: 20150811, end: 20180704
  13. PROGRAF [Concomitant]
     Active Substance: TACROLIMUS
     Dosage: 3 MG, QD
     Route: 065
     Dates: start: 20141128, end: 20150506
  14. MEROPENEM. [Concomitant]
     Active Substance: MEROPENEM
     Indication: SEPTIC SHOCK
     Dosage: 1 G, TID
     Route: 065
     Dates: start: 20181005, end: 20181020
  15. CELLCEPT [Suspect]
     Active Substance: MYCOPHENOLATE MOFETIL\MYCOPHENOLATE MOFETIL HYDROCHLORIDE
     Dosage: 1000 MG, QD
     Route: 065
     Dates: start: 20171201
  16. PROGRAF [Concomitant]
     Active Substance: TACROLIMUS
     Dosage: 2 MG, QD
     Route: 065
     Dates: start: 20150507, end: 20150603

REACTIONS (5)
  - Deep vein thrombosis [Recovering/Resolving]
  - Pneumonia [Recovering/Resolving]
  - Positron emission tomogram abnormal [Not Recovered/Not Resolved]
  - Pulmonary infarction [Recovered/Resolved]
  - Pulmonary mass [Not Recovered/Not Resolved]

NARRATIVE: CASE EVENT DATE: 20171103
